FAERS Safety Report 4642093-2 (Version None)
Quarter: 2005Q2

REPORT INFORMATION
  Report Type: 
  Country: None (occurrence: None)
  Receive Date: 20050420
  Receipt Date: 20050408
  Transmission Date: 20051028
  Serious: Yes (Hospitalization, Other)
  Sender: FDA-Public Use
  Company Number: 2005057266

PATIENT
  Age: 70 Year
  Sex: Female
  Weight: 74.8435 kg

DRUGS (12)
  1. BEXTRA [Suspect]
     Indication: BACK PAIN
     Dosage: 10 MG (10 MG, 1 IN 1 D), ORAL
     Route: 048
     Dates: start: 20011101, end: 20050303
  2. ALL OTHER THERAPEUTIC PRODUCTS [Suspect]
     Indication: RASH
     Route: 061
  3. LEVOTHYROXINE SODIUM [Concomitant]
  4. ASPIRIN [Concomitant]
  5. GLIPIZIDE [Concomitant]
  6. ENALAPRIL MALEATE [Concomitant]
  7. ASCORBIC ACID [Concomitant]
  8. MULTIVITAMINS (ASCORBIC ACID/ERGOCALCIFEROL/FOLIC ACID/NICOTINAMIDE/PA [Concomitant]
  9. BECOSYM FORTE (NICOTINAMIDE, PYRIDOXINE HYDROCHLORIDE, RIBOFLAVIN, THI [Concomitant]
  10. SIMVASTATIN [Concomitant]
  11. ALL OTHER THERAPEUTIC PRODUCTS [Concomitant]
  12. BALMEX OINTMENT (BISMUTH SUBNITRATE, DIMETICONE, ERGOCALCIFEROL,PERUVI [Suspect]
     Indication: RASH

REACTIONS (10)
  - BLOOD POTASSIUM INCREASED [None]
  - BLOOD THYROID STIMULATING HORMONE DECREASED [None]
  - BURNING SENSATION [None]
  - CONTUSION [None]
  - CORONARY ARTERY OCCLUSION [None]
  - DIABETIC NEUROPATHY [None]
  - DRUG INEFFECTIVE [None]
  - RASH [None]
  - ROAD TRAFFIC ACCIDENT [None]
  - TREATMENT NONCOMPLIANCE [None]
